FAERS Safety Report 10164601 (Version 1)
Quarter: 2014Q2

REPORT INFORMATION
  Report Type: Spontaneous
  Country: US (occurrence: US)
  Receive Date: 20140510
  Receipt Date: 20140510
  Transmission Date: 20141212
  Serious: No
  Sender: FDA-Public Use
  Company Number: US-BRISTOL-MYERS SQUIBB COMPANY-19594316

PATIENT
  Age: 75 Year
  Sex: Female
  Weight: 79.82 kg

DRUGS (2)
  1. BYDUREON [Suspect]
     Indication: TYPE 2 DIABETES MELLITUS
     Dosage: PRESCRIPTION #: 0793745-05616
     Dates: start: 201304
  2. LISINOPRIL [Suspect]

REACTIONS (4)
  - Cough [Unknown]
  - Throat irritation [Unknown]
  - Eructation [Unknown]
  - Weight decreased [Unknown]
